FAERS Safety Report 21965890 (Version 2)
Quarter: 2023Q1

REPORT INFORMATION
  Report Type: Spontaneous
  Country: CA (occurrence: CA)
  Receive Date: 20230208
  Receipt Date: 20230222
  Transmission Date: 20230417
  Serious: Yes (Other)
  Sender: FDA-Public Use
  Company Number: CA-JNJFOC-20230205342

PATIENT
  Age: 26 Year
  Sex: Male
  Weight: 90 kg

DRUGS (9)
  1. REMICADE [Suspect]
     Active Substance: INFLIXIMAB
     Indication: Crohn^s disease
     Route: 041
  2. INFLIXIMAB [Suspect]
     Active Substance: INFLIXIMAB
     Indication: Crohn^s disease
     Route: 042
  3. INFLIXIMAB [Suspect]
     Active Substance: INFLIXIMAB
     Route: 042
  4. INFLIXIMAB [Suspect]
     Active Substance: INFLIXIMAB
     Route: 042
  5. CANNABIDIOL [Concomitant]
     Active Substance: CANNABIDIOL
  6. FOLIC ACID [Concomitant]
     Active Substance: FOLIC ACID
  7. LEUCOVORIN CALCIUM [Concomitant]
     Active Substance: LEUCOVORIN CALCIUM
  8. METHOTREXATE [Concomitant]
     Active Substance: METHOTREXATE
     Route: 042
  9. CHOLESTYRAMINE [Concomitant]
     Active Substance: CHOLESTYRAMINE
     Route: 048

REACTIONS (16)
  - Necrosis [Unknown]
  - Hepatic steatosis [Unknown]
  - Oesophagitis [Unknown]
  - Inflammation [Unknown]
  - Haemorrhoidal haemorrhage [Unknown]
  - Ulcer [Unknown]
  - Weight decreased [Unknown]
  - Aphthous ulcer [Unknown]
  - Anxiety [Unknown]
  - Stress [Unknown]
  - Drug level increased [Unknown]
  - Bowel movement irregularity [Unknown]
  - Fatigue [Unknown]
  - Off label use [Unknown]
  - Intentional product use issue [Unknown]
  - Drug ineffective [Unknown]
